FAERS Safety Report 7618364-4 (Version None)
Quarter: 2011Q3

REPORT INFORMATION
  Report Type: 
  Country: None (occurrence: None)
  Receive Date: 20110718
  Receipt Date: 20110712
  Transmission Date: 20111222
  Serious: Yes (Hospitalization)
  Sender: FDA-Public Use
  Company Number: FR-ROCHE-789415

PATIENT
  Sex: Male

DRUGS (9)
  1. PREVISCAN [Concomitant]
     Route: 048
  2. OFLOXACIN [Suspect]
     Route: 065
  3. SKENAN LP [Concomitant]
     Route: 048
  4. ACETAMINOPHEN [Suspect]
     Route: 048
     Dates: start: 20091101
  5. LYRICA [Suspect]
     Route: 048
     Dates: start: 20091101
  6. LEVOTHYROXINE SODIUM [Concomitant]
     Route: 048
  7. NEXIUM [Suspect]
     Dosage: START DATE; FOR A LONG TIME
     Route: 048
     Dates: end: 20091101
  8. FORLAX [Concomitant]
     Route: 048
     Dates: end: 20091101
  9. TAMIFLU [Suspect]
     Route: 048
     Dates: start: 20091101, end: 20091101

REACTIONS (1)
  - RENAL TUBULAR DISORDER [None]
